FAERS Safety Report 8218516-9 (Version None)
Quarter: 2012Q1

REPORT INFORMATION
  Report Type: 
  Country: None (occurrence: None)
  Receive Date: 20120319
  Receipt Date: 20120315
  Transmission Date: 20120608
  Serious: Yes (Other)
  Sender: FDA-Public Use
  Company Number: US-PFIZER INC-2012068924

PATIENT
  Sex: Female
  Weight: 68.027 kg

DRUGS (15)
  1. NORVASC [Suspect]
     Indication: HYPERTENSION
     Dosage: UNK
     Dates: start: 20100101
  2. COUMADIN [Concomitant]
     Dosage: UNK
  3. ALDACTONE [Concomitant]
     Dosage: UNK
  4. MAGNESIUM [Concomitant]
     Dosage: UNK
  5. LASIX [Concomitant]
     Dosage: UNK
  6. PROTONIX [Concomitant]
     Dosage: UNK
  7. METOLAZONE [Concomitant]
     Dosage: UNK
  8. LIPITOR [Concomitant]
     Dosage: UNK
  9. SYNTHROID [Concomitant]
     Dosage: UNK
  10. TIKOSYN [Suspect]
     Indication: ATRIAL FIBRILLATION
     Dosage: 250 UG, 2X/DAY
     Route: 048
     Dates: start: 20030101
  11. COREG [Concomitant]
     Dosage: UNK
  12. TIKOSYN [Suspect]
     Dosage: 500 UG, 2X/DAY
     Route: 048
  13. ALTACE [Concomitant]
     Dosage: UNK
  14. POTASSIUM [Concomitant]
     Dosage: UNK
  15. VITAMIN B-12 [Concomitant]
     Dosage: UNK

REACTIONS (1)
  - DIABETES MELLITUS [None]
